FAERS Safety Report 7605769-0 (Version None)
Quarter: 2011Q3

REPORT INFORMATION
  Report Type: 
  Country: None (occurrence: None)
  Receive Date: 20110713
  Receipt Date: 20110705
  Transmission Date: 20111222
  Serious: Yes (Other)
  Sender: FDA-Public Use
  Company Number: CN-JNJFOC-20100607162

PATIENT
  Age: 42 Year
  Sex: Female

DRUGS (2)
  1. MICONAZOLE NITRATE [Suspect]
     Indication: VAGINAL INFECTION
     Route: 067
     Dates: start: 20100621, end: 20100623
  2. MICONAZOLE NITRATE [Suspect]
     Route: 067

REACTIONS (4)
  - ABORTION SPONTANEOUS [None]
  - VAGINAL HAEMORRHAGE [None]
  - INTENTIONAL DRUG MISUSE [None]
  - MATERNAL EXPOSURE DURING PREGNANCY [None]
